FAERS Safety Report 24675566 (Version 1)
Quarter: 2024Q4

REPORT INFORMATION
  Report Type: Report from Study
  Country: CA (occurrence: CA)
  Receive Date: 20241128
  Receipt Date: 20241128
  Transmission Date: 20250115
  Serious: Yes (Other)
  Sender: NOVARTIS
  Company Number: CA-002147023-NVSC2024CA029237

PATIENT
  Age: 32 Year
  Sex: Female

DRUGS (3)
  1. COSENTYX [Suspect]
     Active Substance: SECUKINUMAB
     Indication: Psoriasis
     Dosage: 300 MG, QW (WEEKS 0, 1, 2, 3, AND 4)
     Route: 058
     Dates: start: 20240202
  2. COSENTYX [Suspect]
     Active Substance: SECUKINUMAB
     Dosage: 300MG, Q4W
     Route: 058
  3. COSENTYX [Suspect]
     Active Substance: SECUKINUMAB
     Dosage: UNK (SECOND DOSE ON FRIDAY)
     Route: 065

REACTIONS (18)
  - Pneumonia [Unknown]
  - Dizziness [Unknown]
  - Fatigue [Unknown]
  - Injection site mass [Unknown]
  - Nasopharyngitis [Unknown]
  - Rhinorrhoea [Unknown]
  - Oropharyngeal pain [Unknown]
  - Nasal congestion [Unknown]
  - Anxiety [Unknown]
  - Pain [Unknown]
  - Intervertebral disc protrusion [Unknown]
  - Streptococcal infection [Unknown]
  - Skin discomfort [Unknown]
  - Musculoskeletal discomfort [Unknown]
  - Pruritus [Recovering/Resolving]
  - Dry skin [Recovering/Resolving]
  - Cough [Unknown]
  - Viral infection [Unknown]

NARRATIVE: CASE EVENT DATE: 20240101
